FAERS Safety Report 9547409 (Version 1)
Quarter: 2013Q3

REPORT INFORMATION
  Report Type: Spontaneous
  Country: US (occurrence: None)
  Receive Date: 20130920
  Receipt Date: 20130920
  Transmission Date: 20140515
  Serious: Yes (Hospitalization)
  Sender: FDA-Public Use
  Company Number: 2013STPI000383

PATIENT
  Age: 39 Year
  Sex: Male
  Weight: 75.3 kg

DRUGS (2)
  1. MATULANE [Suspect]
     Indication: HODGKIN^S DISEASE
     Route: 048
     Dates: start: 201308
  2. COREG (CARVEDILOL) [Concomitant]

REACTIONS (1)
  - Nonspecific reaction [None]
